FAERS Safety Report 12247144 (Version 1)
Quarter: 2016Q2

REPORT INFORMATION
  Report Type: Spontaneous
  Country: US (occurrence: US)
  Receive Date: 20160407
  Receipt Date: 20160407
  Transmission Date: 20160815
  Serious: Yes (Other)
  Sender: FDA-Public Use
  Company Number: US-BAYER-2016-066461

PATIENT
  Sex: Female

DRUGS (3)
  1. CLIMARA [Suspect]
     Active Substance: ESTRADIOL
  2. CENESTIN [Suspect]
     Active Substance: ESTROGENS, CONJUGATED SYNTHETIC A
  3. ESTROGENS CONJUGATED [Suspect]
     Active Substance: ESTROGENS, CONJUGATED

REACTIONS (2)
  - Breast cancer female [None]
  - Drug hypersensitivity [None]
